FAERS Safety Report 20245451 (Version 1)
Quarter: 2021Q4

REPORT INFORMATION
  Report Type: Spontaneous
  Country: US (occurrence: US)
  Receive Date: 20211229
  Receipt Date: 20211229
  Transmission Date: 20220303
  Serious: Yes (Other)
  Sender: FDA-Public Use
  Company Number: US-ELI_LILLY_AND_COMPANY-US202112011436

PATIENT
  Sex: Female

DRUGS (1)
  1. HUMALOG KWIKPEN [Suspect]
     Active Substance: INSULIN LISPRO
     Indication: Diabetes mellitus
     Dosage: UNK UNK, PRN (SLIDING SCALE PER MEAL)
     Route: 058
     Dates: start: 2001

REACTIONS (4)
  - Retinal haemorrhage [Unknown]
  - Optic atrophy [Not Recovered/Not Resolved]
  - Cataract [Not Recovered/Not Resolved]
  - Accidental underdose [Recovering/Resolving]
